FAERS Safety Report 19057624 (Version 1)
Quarter: 2021Q1

REPORT INFORMATION
  Report Type: Spontaneous
  Country: US (occurrence: US)
  Receive Date: 20210325
  Receipt Date: 20210325
  Transmission Date: 20210420
  Serious: No
  Sender: FDA-Public Use
  Company Number: US-ELI_LILLY_AND_COMPANY-US202103012007

PATIENT
  Sex: Female

DRUGS (3)
  1. BAQSIMI [Suspect]
     Active Substance: GLUCAGON
     Indication: HYPOGLYCAEMIA
     Dosage: UNK UNK, UNKNOWN
     Route: 045
     Dates: start: 202011
  2. GLUCAGON. [Concomitant]
     Active Substance: GLUCAGON
     Indication: HYPOGLYCAEMIA
  3. BAQSIMI [Suspect]
     Active Substance: GLUCAGON
     Indication: HYPOGLYCAEMIA
     Dosage: UNK UNK, UNKNOWN
     Route: 045
     Dates: start: 202011

REACTIONS (2)
  - Drug ineffective [Unknown]
  - Hypoglycaemia [Recovered/Resolved]
